FAERS Safety Report 5684500-2 (Version None)
Quarter: 2008Q1

REPORT INFORMATION
  Report Type: 
  Country: None (occurrence: None)
  Receive Date: 20080328
  Receipt Date: 20080317
  Transmission Date: 20080703
  Serious: Yes (Hospitalization)
  Sender: FDA-Public Use
  Company Number: PT-KINGPHARMUSA00001-K200800338

PATIENT

DRUGS (3)
  1. SEPTRA [Suspect]
     Indication: RESPIRATORY TRACT INFECTION
  2. AMOXICILLIN [Suspect]
     Indication: RESPIRATORY TRACT INFECTION
  3. CLARITROMYCINE SANDOZ [Suspect]
     Indication: RESPIRATORY TRACT INFECTION

REACTIONS (7)
  - BLOOD CREATININE INCREASED [None]
  - DERMATITIS EXFOLIATIVE [None]
  - DRUG RASH WITH EOSINOPHILIA AND SYSTEMIC SYMPTOMS [None]
  - EOSINOPHILIA [None]
  - PERIORBITAL OEDEMA [None]
  - PRURITUS [None]
  - TRANSAMINASES INCREASED [None]
